FAERS Safety Report 25437495 (Version 1)
Quarter: 2025Q2

REPORT INFORMATION
  Report Type: Spontaneous
  Country: CA (occurrence: CA)
  Receive Date: 20250616
  Receipt Date: 20250616
  Transmission Date: 20250716
  Serious: Yes (Death, Life-Threatening, Hospitalization, Disabling, Congenital Anomaly, Other)
  Sender: Haleon PLC
  Company Number: CA-HALEON-2246664

PATIENT
  Age: 80 Year
  Sex: Male

DRUGS (219)
  1. FLONASE ALLERGY RELIEF [Suspect]
     Active Substance: FLUTICASONE PROPIONATE
     Indication: Product used for unknown indication
  2. FLONASE ALLERGY RELIEF [Suspect]
     Active Substance: FLUTICASONE PROPIONATE
     Indication: Vitamin supplementation
  3. ALLOPURINOL [Suspect]
     Active Substance: ALLOPURINOL
     Indication: Product used for unknown indication
     Route: 048
  4. ALLOPURINOL [Suspect]
     Active Substance: ALLOPURINOL
     Indication: Off label use
  5. ALLOPURINOL [Suspect]
     Active Substance: ALLOPURINOL
     Indication: Intentional product misuse
  6. ALLOPURINOL [Suspect]
     Active Substance: ALLOPURINOL
     Indication: Blood uric acid increased
  7. HEPARIN SODIUM [Suspect]
     Active Substance: HEPARIN SODIUM
     Indication: Anticoagulant therapy
     Route: 042
  8. HEPARIN SODIUM [Suspect]
     Active Substance: HEPARIN SODIUM
     Indication: Product used for unknown indication
  9. HEPARIN SODIUM [Suspect]
     Active Substance: HEPARIN SODIUM
     Indication: Anticoagulant therapy
     Route: 042
  10. HEPARIN SODIUM [Suspect]
     Active Substance: HEPARIN SODIUM
     Indication: Product used for unknown indication
     Dosage: DOSE FORM: SOLUTION FOR INJECTION/INFUSION
     Route: 042
  11. HEPARIN SODIUM [Suspect]
     Active Substance: HEPARIN SODIUM
     Dosage: PATIENT ROA : INTRACAVERNOUS. AND DOSE FORM: SOLUTION FOR INJECTION/INFUSION
  12. HEPARIN SODIUM [Suspect]
     Active Substance: HEPARIN SODIUM
  13. HEPARIN SODIUM [Suspect]
     Active Substance: HEPARIN SODIUM
     Dosage: PATIENT ROA : INTRACAVERNOUS AND DOSE FORM: SOLUTION FOR INJECTION/INFUSION
  14. HEPARIN SODIUM [Suspect]
     Active Substance: HEPARIN SODIUM
     Route: 042
  15. HEPARIN SODIUM [Suspect]
     Active Substance: HEPARIN SODIUM
     Dosage: DOSE FORM: SOLUTION FOR INJECTION/INFUSION
     Route: 042
  16. HEPARIN SODIUM [Suspect]
     Active Substance: HEPARIN SODIUM
     Dosage: DOSE FORM: SOLUTION FOR INJECTION/INFUSION
     Route: 042
  17. HEPARIN SODIUM [Suspect]
     Active Substance: HEPARIN SODIUM
     Route: 042
  18. HEPARIN SODIUM [Suspect]
     Active Substance: HEPARIN SODIUM
     Route: 042
  19. HEPARIN SODIUM [Suspect]
     Active Substance: HEPARIN SODIUM
  20. HEPARIN SODIUM [Suspect]
     Active Substance: HEPARIN SODIUM
  21. HYDROMORPHONE [Suspect]
     Active Substance: HYDROMORPHONE
     Indication: Analgesic therapy
     Route: 058
  22. HYDROMORPHONE [Suspect]
     Active Substance: HYDROMORPHONE
     Route: 058
  23. HYDROMORPHONE [Suspect]
     Active Substance: HYDROMORPHONE
     Route: 058
  24. HYDROMORPHONE [Suspect]
     Active Substance: HYDROMORPHONE
     Route: 058
  25. HYDROMORPHONE [Suspect]
     Active Substance: HYDROMORPHONE
     Route: 058
  26. HYDROMORPHONE [Suspect]
     Active Substance: HYDROMORPHONE
     Dosage: DOSE FORM: UNKNOWN
     Route: 058
  27. HYDROMORPHONE [Suspect]
     Active Substance: HYDROMORPHONE
  28. HYDROMORPHONE [Suspect]
     Active Substance: HYDROMORPHONE
     Dosage: DOSE FORM AND PATIENT ROA: UNKNOWN
  29. HYDROMORPHONE [Suspect]
     Active Substance: HYDROMORPHONE
  30. HYDROMORPHONE [Suspect]
     Active Substance: HYDROMORPHONE
     Dosage: DOSE FORM : UNKNOWN
     Route: 058
  31. HYDROMORPHONE [Suspect]
     Active Substance: HYDROMORPHONE
     Dosage: DOSE FORM AND PATIENT ROA: UNKNOWN
  32. HYDROMORPHONE [Suspect]
     Active Substance: HYDROMORPHONE
     Dosage: DOSE FORM: NOT SPECIFIED
     Route: 058
  33. HYDROMORPHONE HYDROCHLORIDE [Suspect]
     Active Substance: HYDROMORPHONE HYDROCHLORIDE
     Indication: Product used for unknown indication
     Route: 058
  34. HYDROMORPHONE HYDROCHLORIDE [Suspect]
     Active Substance: HYDROMORPHONE HYDROCHLORIDE
     Indication: Off label use
     Dosage: DOSE FORM: UNKNOWN
     Route: 058
  35. HYDROMORPHONE HYDROCHLORIDE [Suspect]
     Active Substance: HYDROMORPHONE HYDROCHLORIDE
     Indication: Intentional product misuse
     Route: 058
  36. HYDROMORPHONE HYDROCHLORIDE [Suspect]
     Active Substance: HYDROMORPHONE HYDROCHLORIDE
     Indication: Analgesic therapy
  37. HYDROMORPHONE HYDROCHLORIDE [Suspect]
     Active Substance: HYDROMORPHONE HYDROCHLORIDE
     Route: 058
  38. HYDROMORPHONE HYDROCHLORIDE [Suspect]
     Active Substance: HYDROMORPHONE HYDROCHLORIDE
     Route: 058
  39. HYDROMORPHONE HYDROCHLORIDE [Suspect]
     Active Substance: HYDROMORPHONE HYDROCHLORIDE
     Route: 058
  40. HYDROMORPHONE HYDROCHLORIDE [Suspect]
     Active Substance: HYDROMORPHONE HYDROCHLORIDE
     Route: 058
  41. HYDROMORPHONE HYDROCHLORIDE [Suspect]
     Active Substance: HYDROMORPHONE HYDROCHLORIDE
     Route: 058
  42. HYDROMORPHONE HYDROCHLORIDE [Suspect]
     Active Substance: HYDROMORPHONE HYDROCHLORIDE
     Dosage: DOSE FORM: UNKNOWN
     Route: 058
  43. HYDROMORPHONE HYDROCHLORIDE [Suspect]
     Active Substance: HYDROMORPHONE HYDROCHLORIDE
     Route: 058
  44. HYDROMORPHONE HYDROCHLORIDE [Suspect]
     Active Substance: HYDROMORPHONE HYDROCHLORIDE
     Route: 058
  45. HYDROMORPHONE HYDROCHLORIDE [Suspect]
     Active Substance: HYDROMORPHONE HYDROCHLORIDE
     Route: 058
  46. HYDROMORPHONE HYDROCHLORIDE [Suspect]
     Active Substance: HYDROMORPHONE HYDROCHLORIDE
     Dosage: DOSE FORM AND PATIENT ROA: UNKNOWN
  47. METRONIDAZOLE [Suspect]
     Active Substance: METRONIDAZOLE
     Indication: Bacterial infection
  48. METRONIDAZOLE [Suspect]
     Active Substance: METRONIDAZOLE
  49. METRONIDAZOLE [Suspect]
     Active Substance: METRONIDAZOLE
     Dosage: DOSE FORM: NOT SPECIFIED
     Route: 048
  50. METRONIDAZOLE [Suspect]
     Active Substance: METRONIDAZOLE
  51. METRONIDAZOLE [Suspect]
     Active Substance: METRONIDAZOLE
  52. METRONIDAZOLE [Suspect]
     Active Substance: METRONIDAZOLE
     Dosage: DOSE FORM: UNKNOWN
     Route: 048
  53. METRONIDAZOLE [Suspect]
     Active Substance: METRONIDAZOLE
     Route: 048
  54. METRONIDAZOLE [Suspect]
     Active Substance: METRONIDAZOLE
     Route: 048
  55. METRONIDAZOLE [Suspect]
     Active Substance: METRONIDAZOLE
     Dosage: DOSE FORM: UNKNOWN
     Route: 048
  56. METRONIDAZOLE [Suspect]
     Active Substance: METRONIDAZOLE
  57. METRONIDAZOLE [Suspect]
     Active Substance: METRONIDAZOLE
  58. NOREPINEPHRINE [Suspect]
     Active Substance: NOREPINEPHRINE
     Indication: Stress
     Dosage: DOSE FORM: NOT SPECIFIED
     Route: 048
  59. NOREPINEPHRINE [Suspect]
     Active Substance: NOREPINEPHRINE
     Dosage: DOSE FORM: UNKNOWN
     Route: 042
  60. NOREPINEPHRINE [Suspect]
     Active Substance: NOREPINEPHRINE
     Route: 042
  61. NOREPINEPHRINE [Suspect]
     Active Substance: NOREPINEPHRINE
     Dosage: DOSE FORM: UNKNOWN
     Route: 048
  62. NOREPINEPHRINE [Suspect]
     Active Substance: NOREPINEPHRINE
  63. NOREPINEPHRINE [Suspect]
     Active Substance: NOREPINEPHRINE
     Dosage: DOSE FORM: UNKNOWN
     Route: 048
  64. POTASSIUM CHLORIDE [Suspect]
     Active Substance: POTASSIUM CHLORIDE
     Indication: Product used for unknown indication
  65. POTASSIUM CHLORIDE [Suspect]
     Active Substance: POTASSIUM CHLORIDE
     Indication: Constipation
     Route: 048
  66. ALBUTEROL [Suspect]
     Active Substance: ALBUTEROL
     Indication: Product used for unknown indication
     Dosage: PATIENT ROA: NOT SPECIFIED.
     Route: 055
  67. ALBUTEROL [Suspect]
     Active Substance: ALBUTEROL
     Indication: Off label use
     Dosage: DOSE FORM: UNKNOWN
     Route: 055
  68. ALBUTEROL [Suspect]
     Active Substance: ALBUTEROL
     Indication: Intentional product misuse
  69. ALBUTEROL [Suspect]
     Active Substance: ALBUTEROL
     Indication: Chronic obstructive pulmonary disease
     Dosage: DOSE FORM: UNKNOWN
     Route: 055
  70. ALBUTEROL [Suspect]
     Active Substance: ALBUTEROL
     Route: 055
  71. ALBUTEROL [Suspect]
     Active Substance: ALBUTEROL
  72. ALBUTEROL [Suspect]
     Active Substance: ALBUTEROL
     Dosage: PATIENT ROA AND DOSE FORM: UNKNOWN
  73. ALBUTEROL [Suspect]
     Active Substance: ALBUTEROL
     Route: 055
  74. ALBUTEROL [Suspect]
     Active Substance: ALBUTEROL
     Dosage: DOSE FORM: UNKNOWN
     Route: 055
  75. ALBUTEROL [Suspect]
     Active Substance: ALBUTEROL
     Route: 055
  76. ALBUTEROL [Suspect]
     Active Substance: ALBUTEROL
     Dosage: PATIENT ROA AND DOSE FORM: UNKNOWN
  77. ALBUTEROL [Suspect]
     Active Substance: ALBUTEROL
     Route: 055
  78. ALBUTEROL [Suspect]
     Active Substance: ALBUTEROL
     Dosage: PATIENT ROA AND DOSE FORM: UNKNOWN
  79. ALBUTEROL [Suspect]
     Active Substance: ALBUTEROL
     Dosage: PATIENT ROA AND DOSE FORM: UNKNOWN
  80. ALBUTEROL [Suspect]
     Active Substance: ALBUTEROL
     Route: 055
  81. ALBUTEROL [Suspect]
     Active Substance: ALBUTEROL
     Dosage: PATIENT ROA AND DOSE FORM: UNKNOWN
  82. ALBUTEROL [Suspect]
     Active Substance: ALBUTEROL
  83. ALBUTEROL [Suspect]
     Active Substance: ALBUTEROL
     Dosage: PATIENT ROA AND DOSE FORM: UNKNOWN
  84. ALBUTEROL [Suspect]
     Active Substance: ALBUTEROL
  85. ALBUTEROL [Suspect]
     Active Substance: ALBUTEROL
     Route: 055
  86. ALBUTEROL [Suspect]
     Active Substance: ALBUTEROL
     Dosage: DOSE FORM: UNKNOWN
     Route: 055
  87. ALBUTEROL [Suspect]
     Active Substance: ALBUTEROL
     Route: 055
  88. ALBUTEROL [Suspect]
     Active Substance: ALBUTEROL
     Dosage: DOSE FORM: UNKNOWN
     Route: 055
  89. ALBUTEROL [Suspect]
     Active Substance: ALBUTEROL
     Dosage: PATIENT ROA AND DOSE FORM: UNKNOWN
  90. ALBUTEROL [Suspect]
     Active Substance: ALBUTEROL
     Dosage: PATIENT ROA AND DOSE FORM: UNKNOWN
  91. ALBUTEROL [Suspect]
     Active Substance: ALBUTEROL
     Dosage: DOSE FORM: UNKNOWN
     Route: 055
  92. ALBUTEROL [Suspect]
     Active Substance: ALBUTEROL
     Route: 055
  93. ALBUTEROL [Suspect]
     Active Substance: ALBUTEROL
  94. ALBUTEROL [Suspect]
     Active Substance: ALBUTEROL
     Dosage: PATIENT ROA AND DOSE FORM: UNKNOWN
  95. ALBUTEROL [Suspect]
     Active Substance: ALBUTEROL
  96. ALBUTEROL [Suspect]
     Active Substance: ALBUTEROL
     Route: 055
  97. ALBUTEROL [Suspect]
     Active Substance: ALBUTEROL
     Dosage: DOSE FORM: UNKNOWN
     Route: 055
  98. ALBUTEROL [Suspect]
     Active Substance: ALBUTEROL
  99. ALBUTEROL [Suspect]
     Active Substance: ALBUTEROL
     Route: 055
  100. ALBUTEROL [Suspect]
     Active Substance: ALBUTEROL
     Dosage: PATIENT ROA AND DOSE FORM: UNKNOWN
  101. ALBUTEROL [Suspect]
     Active Substance: ALBUTEROL
     Route: 055
  102. ALBUTEROL [Suspect]
     Active Substance: ALBUTEROL
     Route: 055
  103. ALBUTEROL [Suspect]
     Active Substance: ALBUTEROL
     Dosage: DOSE FORM AND PATIENT ROA : UNKNOWN
  104. ALBUTEROL [Suspect]
     Active Substance: ALBUTEROL
  105. ALBUTEROL [Suspect]
     Active Substance: ALBUTEROL
     Route: 055
  106. ALBUTEROL [Suspect]
     Active Substance: ALBUTEROL
     Route: 055
  107. AMIODARONE HYDROCHLORIDE [Suspect]
     Active Substance: AMIODARONE HYDROCHLORIDE
     Indication: Ventricular fibrillation
     Route: 042
  108. AMIODARONE HYDROCHLORIDE [Suspect]
     Active Substance: AMIODARONE HYDROCHLORIDE
     Indication: Intentional product misuse
     Dosage: PATIENT ROA  AND DOSE FORM: UNKNOWN
  109. AMIODARONE HYDROCHLORIDE [Suspect]
     Active Substance: AMIODARONE HYDROCHLORIDE
     Indication: Drug therapy
  110. AMIODARONE HYDROCHLORIDE [Suspect]
     Active Substance: AMIODARONE HYDROCHLORIDE
     Indication: Product used for unknown indication
  111. AMIODARONE HYDROCHLORIDE [Suspect]
     Active Substance: AMIODARONE HYDROCHLORIDE
     Indication: Off label use
  112. AMIODARONE HYDROCHLORIDE [Suspect]
     Active Substance: AMIODARONE HYDROCHLORIDE
     Route: 042
  113. AMIODARONE HYDROCHLORIDE [Suspect]
     Active Substance: AMIODARONE HYDROCHLORIDE
     Dosage: PATIENT ROA AND DOSE FORM: UNKNOWN
  114. AMIODARONE HYDROCHLORIDE [Suspect]
     Active Substance: AMIODARONE HYDROCHLORIDE
     Route: 042
  115. AMIODARONE HYDROCHLORIDE [Suspect]
     Active Substance: AMIODARONE HYDROCHLORIDE
     Dosage: DOSE FORM: UNKNOWN
     Route: 042
  116. AMIODARONE HYDROCHLORIDE [Suspect]
     Active Substance: AMIODARONE HYDROCHLORIDE
  117. AMIODARONE HYDROCHLORIDE [Suspect]
     Active Substance: AMIODARONE HYDROCHLORIDE
     Dosage: PATIENT ROA AND DOSE FORM: UNKNOWN
  118. AMIODARONE HYDROCHLORIDE [Suspect]
     Active Substance: AMIODARONE HYDROCHLORIDE
  119. AMIODARONE HYDROCHLORIDE [Suspect]
     Active Substance: AMIODARONE HYDROCHLORIDE
  120. AMIODARONE HYDROCHLORIDE [Suspect]
     Active Substance: AMIODARONE HYDROCHLORIDE
  121. LANSOPRAZOLE [Suspect]
     Active Substance: LANSOPRAZOLE
     Indication: Intentional product misuse
     Route: 048
  122. LANSOPRAZOLE [Suspect]
     Active Substance: LANSOPRAZOLE
     Indication: Antacid therapy
     Route: 048
  123. LANSOPRAZOLE [Suspect]
     Active Substance: LANSOPRAZOLE
     Indication: Off label use
  124. ONDANSETRON [Suspect]
     Active Substance: ONDANSETRON
     Indication: Vomiting
     Route: 042
  125. ONDANSETRON [Suspect]
     Active Substance: ONDANSETRON
     Indication: Nausea
  126. ONDANSETRON [Suspect]
     Active Substance: ONDANSETRON
     Indication: Product used for unknown indication
     Route: 042
  127. ONDANSETRON [Suspect]
     Active Substance: ONDANSETRON
     Indication: Off label use
     Route: 042
  128. ONDANSETRON [Suspect]
     Active Substance: ONDANSETRON
     Dosage: DOSE FORM : UNKNOWN
     Route: 048
  129. ONDANSETRON [Suspect]
     Active Substance: ONDANSETRON
     Dosage: DOSE FORM : UNKNOWN
     Route: 048
  130. ONDANSETRON [Suspect]
     Active Substance: ONDANSETRON
     Route: 042
  131. ONDANSETRON [Suspect]
     Active Substance: ONDANSETRON
     Route: 042
  132. ONDANSETRON [Suspect]
     Active Substance: ONDANSETRON
     Dosage: PATIENT ROA: NOT SPECIFIED.
     Route: 042
  133. ONDANSETRON [Suspect]
     Active Substance: ONDANSETRON
     Dosage: DOSE FORM : UNKNOWN
     Route: 042
  134. ONDANSETRON [Suspect]
     Active Substance: ONDANSETRON
     Dosage: DOSE FORM : UNKNOWN
     Route: 042
  135. ONDANSETRON [Suspect]
     Active Substance: ONDANSETRON
     Dosage: DOSE FORM: UNKNOWN
     Route: 042
  136. ONDANSETRON [Suspect]
     Active Substance: ONDANSETRON
     Dosage: DOSE FORM: UNKNOWN
     Route: 042
  137. ONDANSETRON [Suspect]
     Active Substance: ONDANSETRON
     Dosage: DOSE FORM: UNKNOWN
     Route: 042
  138. ONDANSETRON [Suspect]
     Active Substance: ONDANSETRON
     Dosage: DOSE FORM: UNKNOWN
     Route: 042
  139. ONDANSETRON [Suspect]
     Active Substance: ONDANSETRON
     Dosage: DOSE FORM: UNKNOWN
     Route: 042
  140. ONDANSETRON [Suspect]
     Active Substance: ONDANSETRON
     Dosage: DOSE FORM: UNKNOWN
     Route: 042
  141. ONDANSETRON [Suspect]
     Active Substance: ONDANSETRON
     Dosage: DOSE FORM: UNKNOWN
     Route: 042
  142. ONDANSETRON [Suspect]
     Active Substance: ONDANSETRON
     Route: 042
  143. ONDANSETRON [Suspect]
     Active Substance: ONDANSETRON
     Route: 042
  144. ONDANSETRON [Suspect]
     Active Substance: ONDANSETRON
     Route: 042
  145. ONDANSETRON [Suspect]
     Active Substance: ONDANSETRON
     Route: 042
  146. ONDANSETRON [Suspect]
     Active Substance: ONDANSETRON
  147. ONDANSETRON [Suspect]
     Active Substance: ONDANSETRON
     Route: 042
  148. ONDANSETRON [Suspect]
     Active Substance: ONDANSETRON
  149. ONDANSETRON [Suspect]
     Active Substance: ONDANSETRON
     Route: 042
  150. ONDANSETRON [Suspect]
     Active Substance: ONDANSETRON
     Dosage: DOSE FORM: UNKNOWN
     Route: 042
  151. ONDANSETRON [Suspect]
     Active Substance: ONDANSETRON
     Route: 042
  152. ONDANSETRON [Suspect]
     Active Substance: ONDANSETRON
  153. ONDANSETRON [Suspect]
     Active Substance: ONDANSETRON
     Route: 012
  154. ONDANSETRON [Suspect]
     Active Substance: ONDANSETRON
     Route: 042
  155. ONDANSETRON [Suspect]
     Active Substance: ONDANSETRON
     Route: 042
  156. ONDANSETRON [Suspect]
     Active Substance: ONDANSETRON
     Dosage: DOSE FORM: UNKNOWN
     Route: 042
  157. ONDANSETRON [Suspect]
     Active Substance: ONDANSETRON
     Dosage: DOSE FORM: UNKNOWN
     Route: 042
  158. ONDANSETRON [Suspect]
     Active Substance: ONDANSETRON
     Dosage: DOSE FORM: UNKNOWN
     Route: 042
  159. ONDANSETRON [Suspect]
     Active Substance: ONDANSETRON
     Route: 042
  160. ONDANSETRON [Suspect]
     Active Substance: ONDANSETRON
     Route: 042
  161. ALLOPURINOL [Suspect]
     Active Substance: ALLOPURINOL
     Indication: Product used for unknown indication
     Dosage: DOSE FORM: UNKNOWN
     Route: 048
  162. ALLOPURINOL [Suspect]
     Active Substance: ALLOPURINOL
     Indication: Off label use
     Dosage: DOSE FORM: UNKNOWN
     Route: 048
  163. ALLOPURINOL [Suspect]
     Active Substance: ALLOPURINOL
     Indication: Intentional product misuse
     Dosage: DOSE FORM: UNKNOWN
     Route: 048
  164. ALLOPURINOL [Suspect]
     Active Substance: ALLOPURINOL
     Indication: Blood uric acid increased
  165. ALLOPURINOL [Suspect]
     Active Substance: ALLOPURINOL
  166. ALLOPURINOL [Suspect]
     Active Substance: ALLOPURINOL
     Dosage: DOSE FORM: UNKNOWN
     Route: 048
  167. ALLOPURINOL [Suspect]
     Active Substance: ALLOPURINOL
  168. CEFTRIAXONE SODIUM [Suspect]
     Active Substance: CEFTRIAXONE SODIUM
     Indication: Bacterial infection
     Route: 042
  169. CEFTRIAXONE SODIUM [Suspect]
     Active Substance: CEFTRIAXONE SODIUM
     Indication: Bacterial infection
     Route: 042
  170. CEFTRIAXONE SODIUM [Suspect]
     Active Substance: CEFTRIAXONE SODIUM
  171. CEFTRIAXONE SODIUM [Suspect]
     Active Substance: CEFTRIAXONE SODIUM
  172. DOBUTAMINE [Suspect]
     Active Substance: DOBUTAMINE HYDROCHLORIDE
     Indication: Product used for unknown indication
  173. DOBUTAMINE [Suspect]
     Active Substance: DOBUTAMINE HYDROCHLORIDE
     Indication: Off label use
     Dosage: DOSE FORM : UNKNOWN
     Route: 042
  174. DOBUTAMINE [Suspect]
     Active Substance: DOBUTAMINE HYDROCHLORIDE
     Indication: Cardiogenic shock
  175. DOBUTAMINE [Suspect]
     Active Substance: DOBUTAMINE HYDROCHLORIDE
     Route: 042
  176. GABAPENTIN [Suspect]
     Active Substance: GABAPENTIN
     Indication: Product used for unknown indication
     Dosage: DOSE FORM : NOT SPECIFIED
     Route: 048
  177. GABAPENTIN [Suspect]
     Active Substance: GABAPENTIN
     Indication: Off label use
     Dosage: DOSAGE FORM : UNKNOWN
     Route: 048
  178. GABAPENTIN [Suspect]
     Active Substance: GABAPENTIN
     Indication: Neuralgia
     Dosage: DOSAGE FORM : UNKNOWN
     Route: 048
  179. GABAPENTIN [Suspect]
     Active Substance: GABAPENTIN
     Indication: Intentional product misuse
  180. GABAPENTIN [Suspect]
     Active Substance: GABAPENTIN
     Route: 048
  181. AMIODARONE HYDROCHLORIDE [Suspect]
     Active Substance: AMIODARONE HYDROCHLORIDE
     Indication: Product used for unknown indication
     Route: 042
  182. AMIODARONE HYDROCHLORIDE [Suspect]
     Active Substance: AMIODARONE HYDROCHLORIDE
     Indication: Off label use
  183. AMIODARONE HYDROCHLORIDE [Suspect]
     Active Substance: AMIODARONE HYDROCHLORIDE
     Indication: Drug therapy
  184. AMIODARONE HYDROCHLORIDE [Suspect]
     Active Substance: AMIODARONE HYDROCHLORIDE
     Indication: Intentional product misuse
  185. AMIODARONE HYDROCHLORIDE [Suspect]
     Active Substance: AMIODARONE HYDROCHLORIDE
     Indication: Ventricular fibrillation
  186. DOCUSATE SODIUM [Suspect]
     Active Substance: DOCUSATE SODIUM
     Indication: Product used for unknown indication
  187. LANSOPRAZOLE [Suspect]
     Active Substance: LANSOPRAZOLE
     Indication: Antacid therapy
     Dosage: DOSE FROM: CAPSULE, DELAYED RELEASE
     Route: 048
  188. LANSOPRAZOLE [Suspect]
     Active Substance: LANSOPRAZOLE
     Indication: Intentional product misuse
  189. LANSOPRAZOLE [Suspect]
     Active Substance: LANSOPRAZOLE
     Indication: Off label use
  190. VITAMIN C [Suspect]
     Active Substance: ASCORBIC ACID
     Indication: Constipation
     Dosage: DOSE FORM: NOT SPECIFIED AND PATIENT ROA : UNKNOWN
  191. VITAMIN K1 [Suspect]
     Active Substance: PHYTONADIONE
     Indication: Vitamin supplementation
  192. VITAMIN K1 [Suspect]
     Active Substance: PHYTONADIONE
     Route: 042
  193. VITAMIN K1 [Suspect]
     Active Substance: PHYTONADIONE
     Dosage: DOSE FORM: UNKNOWN
     Route: 042
  194. VITAMIN K1 [Suspect]
     Active Substance: PHYTONADIONE
     Dosage: DOSE FORM : UNKNOWN
     Route: 042
  195. SODIUM BICARBONATE [Suspect]
     Active Substance: SODIUM BICARBONATE
     Indication: Constipation
     Dosage: PATIENT ROA : UNKNOWN
  196. SIMVASTATIN [Suspect]
     Active Substance: SIMVASTATIN
     Indication: Vitamin supplementation
     Route: 048
  197. SIMVASTATIN [Suspect]
     Active Substance: SIMVASTATIN
     Indication: Product used for unknown indication
  198. SIMVASTATIN [Suspect]
     Active Substance: SIMVASTATIN
     Indication: Off label use
  199. SIMVASTATIN [Suspect]
     Active Substance: SIMVASTATIN
     Indication: Blood cholesterol increased
  200. THEOPHYLLINE [Suspect]
     Active Substance: THEOPHYLLINE
     Indication: Intentional product misuse
     Dosage: PATIENT RAO: UNKNOWN
  201. THEOPHYLLINE [Suspect]
     Active Substance: THEOPHYLLINE
     Indication: Off label use
     Dosage: PATIENT RAO: UNKNOWN
  202. THEOPHYLLINE [Suspect]
     Active Substance: THEOPHYLLINE
     Dosage: PATIENT RAO: UNKNOWN
  203. THEOPHYLLINE [Suspect]
     Active Substance: THEOPHYLLINE
     Dosage: PATIENT RAO: UNKNOWN
  204. THEOPHYLLINE [Suspect]
     Active Substance: THEOPHYLLINE
     Dosage: PATIENT RAO: UNKNOWN
  205. THEOPHYLLINE [Suspect]
     Active Substance: THEOPHYLLINE
     Dosage: PATIENT RAO: UNKNOWN
  206. THEOPHYLLINE [Suspect]
     Active Substance: THEOPHYLLINE
     Dosage: PATIENT RAO: UNKNOWN
  207. THEOPHYLLINE [Suspect]
     Active Substance: THEOPHYLLINE
     Dosage: PATIENT RAO: UNKNOWN
  208. VASOPRESSIN [Suspect]
     Active Substance: VASOPRESSIN
     Indication: Thrombosis
     Route: 042
  209. VASOPRESSIN [Suspect]
     Active Substance: VASOPRESSIN
     Indication: Drug therapy
  210. VASOPRESSIN [Suspect]
     Active Substance: VASOPRESSIN
  211. VASOPRESSIN [Suspect]
     Active Substance: VASOPRESSIN
     Dosage: DOSE: 1.0 IU(INTERNATIONAL UNIT), DOSE FORM AND PATIENT ROA : UNKNOWN
  212. VASOPRESSIN [Suspect]
     Active Substance: VASOPRESSIN
     Route: 042
  213. VASOPRESSIN [Suspect]
     Active Substance: VASOPRESSIN
     Dosage: DOSE FORM: UNKNOWN
     Route: 042
  214. THEOPHYLLINE [Suspect]
     Active Substance: THEOPHYLLINE
     Indication: Off label use
     Dosage: DOSE FORM: NOT SPECIFIED AND PATIENT ROA: UNKNOWN
  215. THEOPHYLLINE [Suspect]
     Active Substance: THEOPHYLLINE
     Indication: Intentional product misuse
  216. SIMVASTATIN [Suspect]
     Active Substance: SIMVASTATIN
     Indication: Vitamin supplementation
     Route: 048
  217. SIMVASTATIN [Suspect]
     Active Substance: SIMVASTATIN
     Indication: Product used for unknown indication
  218. SIMVASTATIN [Suspect]
     Active Substance: SIMVASTATIN
     Indication: Off label use
  219. SIMVASTATIN [Suspect]
     Active Substance: SIMVASTATIN
     Indication: Blood cholesterol increased

REACTIONS (8)
  - Pulmonary embolism [Fatal]
  - Sleep disorder therapy [Fatal]
  - Sleep disorder [Fatal]
  - Troponin increased [Fatal]
  - Thrombosis [Fatal]
  - Swelling [Fatal]
  - Somnolence [Fatal]
  - Ulcer [Fatal]
